FAERS Safety Report 6024476-1 (Version None)
Quarter: 2008Q4

REPORT INFORMATION
  Report Type: 
  Country: None (occurrence: None)
  Receive Date: 20081231
  Receipt Date: 20080926
  Transmission Date: 20090506
  Serious: No
  Sender: FDA-Public Use
  Company Number: US-BRISTOL-MYERS SQUIBB COMPANY-14321715

PATIENT
  Age: 20 Year
  Sex: Male
  Weight: 81 kg

DRUGS (3)
  1. ORENCIA [Suspect]
     Indication: RHEUMATOID ARTHRITIS
     Dosage: DURATION 3-4 MONTH
     Route: 042
     Dates: start: 20080825
  2. STEROIDS [Concomitant]
  3. ANTIHISTAMINE NOS [Concomitant]

REACTIONS (4)
  - BLOOD PRESSURE INCREASED [None]
  - CHEST PAIN [None]
  - NAUSEA [None]
  - RASH [None]
